FAERS Safety Report 10789808 (Version 3)
Quarter: 2015Q1

REPORT INFORMATION
  Report Type: Spontaneous
  Country: US (occurrence: US)
  Receive Date: 20150212
  Receipt Date: 20150320
  Transmission Date: 20150721
  Serious: Yes (Hospitalization, Other)
  Sender: FDA-Public Use
  Company Number: US-GLAXOSMITHKLINE-A1075982A

PATIENT
  Sex: Female

DRUGS (1)
  1. VENTOLIN [Suspect]
     Active Substance: ALBUTEROL SULFATE
     Indication: ASTHMA
     Dosage: 90 MCG UNKNOWN DOSING
     Route: 055
     Dates: start: 20100616

REACTIONS (7)
  - Surgery [Unknown]
  - Gastrointestinal injury [Unknown]
  - Mental disorder [Unknown]
  - Nerve injury [Unknown]
  - Drug dose omission [Unknown]
  - Hospitalisation [Recovered/Resolved]
  - Feeding disorder [Unknown]
